FAERS Safety Report 21993422 (Version 1)
Quarter: 2023Q1

REPORT INFORMATION
  Report Type: Spontaneous
  Country: US (occurrence: US)
  Receive Date: 20230215
  Receipt Date: 20230215
  Transmission Date: 20230418
  Serious: No
  Sender: FDA-Public Use
  Company Number: US-TEVA-2023-US-2852026

PATIENT
  Sex: Female

DRUGS (2)
  1. AJOVY [Suspect]
     Active Substance: FREMANEZUMAB-VFRM
     Indication: Product used for unknown indication
     Dosage: 225 MG / 1.5 ML
     Route: 065
  2. AJOVY [Suspect]
     Active Substance: FREMANEZUMAB-VFRM
     Dosage: 225 MG / 1.5 ML
     Route: 065

REACTIONS (7)
  - Accidental exposure to product [Unknown]
  - Wrong technique in device usage process [Unknown]
  - Injection site discolouration [Recovered/Resolved]
  - Incorrect dose administered by device [Unknown]
  - Device malfunction [Unknown]
  - Device deployment issue [Unknown]
  - Device leakage [Unknown]
